FAERS Safety Report 8217565-4 (Version None)
Quarter: 2012Q1

REPORT INFORMATION
  Report Type: 
  Country: None (occurrence: None)
  Receive Date: 20120319
  Receipt Date: 20120319
  Transmission Date: 20120608
  Serious: Yes (Other)
  Sender: FDA-Public Use
  Company Number: None

PATIENT
  Sex: Female

DRUGS (7)
  1. COQ10 [Concomitant]
     Route: 048
  2. CRESTOR [Suspect]
     Indication: BLOOD CHOLESTEROL INCREASED
     Dosage: 1 TABLET
     Route: 048
  3. ASPIRIN [Concomitant]
     Route: 048
  4. MULTI-VITAMINS [Concomitant]
     Route: 048
  5. AMLODIPINE [Concomitant]
     Route: 048
  6. ATENOLOL [Concomitant]
     Route: 048
  7. DIOVAN HCT [Concomitant]
     Route: 048

REACTIONS (4)
  - MUSCULAR WEAKNESS [None]
  - MUSCLE SPASMS [None]
  - PYREXIA [None]
  - GAIT DISTURBANCE [None]
